FAERS Safety Report 23480159 (Version 2)
Quarter: 2024Q1

REPORT INFORMATION
  Report Type: Report from Study
  Country: GB (occurrence: GB)
  Receive Date: 20240205
  Receipt Date: 20240214
  Transmission Date: 20240409
  Serious: Yes (Other)
  Sender: FDA-Public Use
  Company Number: GB-SANDOZ-SDZ2024GB010569

PATIENT
  Sex: Female

DRUGS (1)
  1. OMNITROPE [Suspect]
     Active Substance: SOMATROPIN
     Indication: Growth hormone deficiency
     Dosage: 0.35 (UNITS NOT PROVIDED), 5M
     Route: 058
     Dates: start: 20240130

REACTIONS (2)
  - Blood pressure increased [Not Recovered/Not Resolved]
  - Cholelithiasis [Unknown]
